FAERS Safety Report 6445634-8 (Version None)
Quarter: 2009Q4

REPORT INFORMATION
  Report Type: 
  Country: None (occurrence: None)
  Receive Date: 20091118
  Receipt Date: 20091118
  Transmission Date: 20100525
  Serious: Yes (Other)
  Sender: FDA-Public Use
  Company Number: None

PATIENT
  Age: 44 Year
  Sex: Female
  Weight: 77.1115 kg

DRUGS (2)
  1. BUPROPION HCL [Suspect]
     Indication: DEPRESSION
     Dosage: 150 MG TWICE DAY
     Dates: start: 20091026, end: 20091113
  2. BUSPIRONE HCL [Suspect]
     Indication: ANXIETY
     Dosage: 10MG TWICE DAY
     Dates: start: 20091026, end: 20091109

REACTIONS (1)
  - URTICARIA [None]
